FAERS Safety Report 9783421 (Version 3)
Quarter: 2014Q1

REPORT INFORMATION
  Report Type: Spontaneous
  Country: GB (occurrence: GB)
  Receive Date: 20131226
  Receipt Date: 20140103
  Transmission Date: 20141002
  Serious: Yes (Other)
  Sender: FDA-Public Use
  Company Number: PHHY2013GB150611

PATIENT
  Sex: Female
  Weight: 3.04 kg

DRUGS (1)
  1. DICLOFENAC [Suspect]
     Dosage: MATERNAL DOSE 75 MG
     Route: 064

REACTIONS (18)
  - Hydrops foetalis [Unknown]
  - Cardiac failure [Recovered/Resolved]
  - Ductus arteriosus premature closure [Unknown]
  - Tricuspid valve incompetence [Unknown]
  - Pericardial effusion [Unknown]
  - Pulmonary arterial pressure increased [Unknown]
  - Pulmonary artery dilatation [Unknown]
  - Oedema [Recovered/Resolved]
  - Atrial septal defect [Unknown]
  - Cardiomegaly [Unknown]
  - Cardiac hypertrophy [Unknown]
  - Dilatation atrial [Unknown]
  - Dilatation ventricular [Unknown]
  - Hepatomegaly [Unknown]
  - Abdominal distension [Unknown]
  - Acidosis [Unknown]
  - Respiratory distress [Unknown]
  - Foetal exposure during pregnancy [Unknown]
